FAERS Safety Report 6641630-6 (Version None)
Quarter: 2010Q1

REPORT INFORMATION
  Report Type: 
  Country: None (occurrence: None)
  Receive Date: 20100317
  Receipt Date: 20100317
  Transmission Date: 20100710
  Serious: No
  Sender: FDA-Public Use
  Company Number: None

PATIENT

DRUGS (2)
  1. INFUVITE ADULT [Suspect]
     Dosage: 10ML DAILY IV
     Route: 042
  2. INFUVITE ADULT [Suspect]

REACTIONS (2)
  - MEDICATION ERROR [None]
  - PRODUCT LOT NUMBER ISSUE [None]
